FAERS Safety Report 8587742-1 (Version None)
Quarter: 2012Q3

REPORT INFORMATION
  Report Type: 
  Country: None (occurrence: None)
  Receive Date: 20120813
  Receipt Date: 20120807
  Transmission Date: 20120928
  Serious: Yes (Other)
  Sender: FDA-Public Use
  Company Number: CA-AMGEN-CANSP2012049577

PATIENT
  Age: 30 Year
  Sex: Male

DRUGS (3)
  1. EPREX [Suspect]
     Dosage: 12000 IU, 3 TIMES/WK
     Route: 042
  2. ARANESP [Suspect]
     Indication: PRODUCT USED FOR UNKNOWN INDICATION
     Route: 065
  3. EPREX [Suspect]
     Dosage: 10000 IU, 3 TIMES/WK

REACTIONS (1)
  - HAEMOGLOBIN DECREASED [None]
